FAERS Safety Report 8762019 (Version 3)
Quarter: 2013Q1

REPORT INFORMATION
  Report Type: Spontaneous
  Country: US (occurrence: US)
  Receive Date: 20120830
  Receipt Date: 20130320
  Transmission Date: 20140127
  Serious: Yes (Congenital Anomaly, Other)
  Sender: FDA-Public Use
  Company Number: US-PFIZER INC-2012211158

PATIENT
  Age: 22 Month
  Sex: Male

DRUGS (14)
  1. ZOLOFT [Suspect]
     Indication: GENERALISED ANXIETY DISORDER
     Dosage: 25 MG, UNK
     Route: 064
     Dates: start: 1999
  2. ZOLOFT [Suspect]
     Dosage: 75 MG, 1X/DAY
     Route: 064
     Dates: start: 20031111, end: 200311
  3. ZOLOFT [Suspect]
     Dosage: 125 MG, 1X/DAY
     Route: 064
     Dates: start: 200311, end: 200311
  4. ZOLOFT [Suspect]
     Dosage: 100 MG, 1X/DAY
     Route: 064
     Dates: end: 20040702
  5. ZOLOFT [Suspect]
     Dosage: 25 MG, 3 DOSES AT MORNING TIME DAILY
     Route: 064
     Dates: start: 20041021
  6. ZOLOFT [Suspect]
     Indication: GENERALISED ANXIETY DISORDER
     Dosage: 4.5 ML, 1X/DAY
     Route: 064
     Dates: start: 20040702
  7. ZOLOFT [Suspect]
     Dosage: 4 ML, 1X/DAY
     Route: 064
     Dates: start: 20040831
  8. ARMOUR THYROID [Concomitant]
     Dosage: UNK
     Route: 064
  9. CEPHALEXIN [Concomitant]
     Dosage: UNK
     Route: 064
  10. CLONAZEPAM [Concomitant]
     Dosage: UNK
     Route: 064
  11. SUCRALFATE [Concomitant]
     Dosage: 1 G, UNK
     Route: 064
     Dates: start: 20050613
  12. INDOMETHACIN [Concomitant]
     Dosage: 25 MG, UNK
     Route: 064
     Dates: start: 20050630
  13. PROCARDIA [Concomitant]
     Dosage: 10 MG, UNK
     Route: 064
     Dates: start: 20050930
  14. ZITHROMAX Z-PACK [Concomitant]
     Dosage: UNK
     Route: 064

REACTIONS (5)
  - Maternal exposure timing unspecified [Unknown]
  - Heart disease congenital [Unknown]
  - Ventricular septal defect [Unknown]
  - Craniosynostosis [Unknown]
  - Scaphocephaly [Unknown]
